FAERS Safety Report 8090414 (Version 2)
Quarter: 2014Q2

REPORT INFORMATION
  Report Type: Spontaneous
  Country: AU (occurrence: AU)
  Receive Date: 20110815
  Receipt Date: 20140415
  Transmission Date: 20141212
  Serious: Yes (Hospitalization, Other)
  Sender: FDA-Public Use
  Company Number: AU-PFIZER INC-2011184122

PATIENT
  Age: 40 Year
  Sex: Female

DRUGS (2)
  1. VENLAFAXINE HCL [Suspect]
     Dosage: 2100 MG, UNK
     Route: 048
  2. MIRTAZAPINE [Suspect]
     Dosage: UNK

REACTIONS (4)
  - Overdose [Unknown]
  - Suicide attempt [Not Recovered/Not Resolved]
  - Stress cardiomyopathy [Not Recovered/Not Resolved]
  - Altered state of consciousness [Not Recovered/Not Resolved]
